FAERS Safety Report 7553834-9 (Version None)
Quarter: 2011Q2

REPORT INFORMATION
  Report Type: 
  Country: None (occurrence: None)
  Receive Date: 20110617
  Receipt Date: 20110608
  Transmission Date: 20111010
  Serious: Yes (Hospitalization, Disabling, Other)
  Sender: FDA-Public Use
  Company Number: FR-JNJFOC-20110503381

PATIENT
  Sex: Male
  Weight: 76 kg

DRUGS (7)
  1. OXYCONTIN [Concomitant]
     Indication: PAIN
     Route: 048
     Dates: start: 20110315
  2. OXYCODONE HCL [Concomitant]
     Indication: PAIN
     Route: 048
     Dates: start: 20110315
  3. LORAZEPAM [Concomitant]
     Indication: PRODUCT USED FOR UNKNOWN INDICATION
     Route: 048
  4. ABIRATERONE ACETATE [Suspect]
     Indication: PROSTATE CANCER
     Route: 048
     Dates: start: 20110404, end: 20110410
  5. ABIRATERONE ACETATE [Suspect]
     Route: 048
     Dates: start: 20110419, end: 20110422
  6. PREDNISOLONE [Suspect]
     Indication: PROSTATE CANCER
     Route: 048
     Dates: start: 20110404
  7. FORLAX [Concomitant]
     Indication: PRODUCT USED FOR UNKNOWN INDICATION
     Route: 048
     Dates: start: 20110315

REACTIONS (7)
  - FACE OEDEMA [None]
  - DEPENDENT PERSONALITY DISORDER [None]
  - DISTURBANCE IN ATTENTION [None]
  - PROSTATE CANCER [None]
  - DRUG ADMINISTRATION ERROR [None]
  - DYSARTHRIA [None]
  - DRUG INEFFECTIVE [None]
